FAERS Safety Report 7168882-0 (Version None)
Quarter: 2010Q4

REPORT INFORMATION
  Report Type: 
  Country: None (occurrence: None)
  Receive Date: 20101216
  Receipt Date: 20100125
  Transmission Date: 20110411
  Serious: No
  Sender: FDA-Public Use
  Company Number: US-AMGEN-KDL387802

PATIENT

DRUGS (5)
  1. ENBREL [Suspect]
     Indication: PRODUCT USED FOR UNKNOWN INDICATION
     Dosage: 50 MG, QWK
     Route: 058
  2. OMEPRAZOLE [Concomitant]
     Dosage: 10 MG, UNK
  3. FERROUS SULFATE [Concomitant]
     Dosage: 325 MG, UNK
  4. ERGOCALCIFEROL [Concomitant]
     Dosage: 1000 IU/KG, UNK
  5. DOCUSATE SODIUM [Concomitant]
     Dosage: 100 MG, UNK

REACTIONS (1)
  - LIVER FUNCTION TEST ABNORMAL [None]
